FAERS Safety Report 25565405 (Version 1)
Quarter: 2025Q3

REPORT INFORMATION
  Report Type: Spontaneous
  Country: US (occurrence: US)
  Receive Date: 20250716
  Receipt Date: 20250716
  Transmission Date: 20251021
  Serious: No
  Sender: NOVO NORDISK
  Company Number: US-NOVOPROD-1361619

PATIENT
  Age: 76 Year
  Sex: Female

DRUGS (1)
  1. OZEMPIC [Suspect]
     Active Substance: SEMAGLUTIDE
     Indication: Type 2 diabetes mellitus
     Dosage: 1 MG.
     Route: 058
     Dates: start: 202402

REACTIONS (3)
  - Decreased appetite [Unknown]
  - Fatigue [Unknown]
  - Illness [Unknown]

NARRATIVE: CASE EVENT DATE: 20241020
